FAERS Safety Report 7561683-0 (Version None)
Quarter: 2011Q2

REPORT INFORMATION
  Report Type: 
  Country: None (occurrence: None)
  Receive Date: 20110621
  Receipt Date: 20101029
  Transmission Date: 20111010
  Serious: No
  Sender: FDA-Public Use
  Company Number: US-ASTRAZENECA-2010SE51418

PATIENT
  Age: 76 Year
  Sex: Female
  Weight: 77.1 kg

DRUGS (3)
  1. CLARITIN [Concomitant]
  2. RHINOCORT [Suspect]
     Dosage: EIGHT DOSES DAILY
     Route: 045
  3. SINGULAIR [Concomitant]

REACTIONS (6)
  - ADVERSE EVENT [None]
  - DRUG DOSE OMISSION [None]
  - TOOTH INFECTION [None]
  - INCORRECT DOSE ADMINISTERED BY DEVICE [None]
  - FUNGAL INFECTION [None]
  - LARYNGITIS [None]
